FAERS Safety Report 6986671-4 (Version None)
Quarter: 2010Q3

REPORT INFORMATION
  Report Type: 
  Country: None (occurrence: None)
  Receive Date: 20100915
  Receipt Date: 20090727
  Transmission Date: 20110219
  Serious: No
  Sender: FDA-Public Use
  Company Number: US-WYE-H10340409

PATIENT
  Sex: Female
  Weight: 61.29 kg

DRUGS (4)
  1. PRISTIQ [Suspect]
     Indication: DEPRESSION
     Route: 048
     Dates: start: 20090424
  2. LAMICTAL [Concomitant]
  3. VICODIN [Concomitant]
  4. ADDERALL 10 [Concomitant]

REACTIONS (2)
  - INCREASED APPETITE [None]
  - WEIGHT INCREASED [None]
